FAERS Safety Report 9957566 (Version 1)
Quarter: 2014Q1

REPORT INFORMATION
  Report Type: Report from Study
  Country: US (occurrence: US)
  Receive Date: 20140304
  Receipt Date: 20140304
  Transmission Date: 20141002
  Serious: No
  Sender: FDA-Public Use
  Company Number: US-ABBVIE-13P-163-1095903-00

PATIENT
  Age: 45 Year
  Sex: Female

DRUGS (7)
  1. HUMIRA [Suspect]
     Indication: RHEUMATOID ARTHRITIS
     Dates: start: 201303, end: 20130417
  2. NAPROXEN [Concomitant]
     Indication: PRODUCT USED FOR UNKNOWN INDICATION
     Dosage: DAILY
  3. PREDNISONE [Concomitant]
     Indication: PRODUCT USED FOR UNKNOWN INDICATION
     Dosage: DAILY
  4. NORVASC [Concomitant]
     Indication: PRODUCT USED FOR UNKNOWN INDICATION
     Dosage: DAILY
  5. ALFALFA [Concomitant]
     Indication: HYPERSENSITIVITY
     Dosage: (DOSE UNKNOWN) DAILY
  6. ALFALFA [Concomitant]
     Indication: SINUS DISORDER
  7. ASPIRIN [Concomitant]
     Indication: PRODUCT USED FOR UNKNOWN INDICATION
     Dosage: 325 MG DAILY

REACTIONS (3)
  - Tooth abscess [Recovering/Resolving]
  - Pain in extremity [Unknown]
  - Arthralgia [Unknown]
